FAERS Safety Report 9513490 (Version 1)
Quarter: 2013Q3

REPORT INFORMATION
  Report Type: Spontaneous
  Country: US (occurrence: US)
  Receive Date: 20130910
  Receipt Date: 20130910
  Transmission Date: 20140515
  Serious: No
  Sender: FDA-Public Use
  Company Number: US-TARO-2013P1005294

PATIENT
  Sex: Male
  Weight: 99.79 kg

DRUGS (13)
  1. WARFARIN SODIUM TABLETS USP 5MG [Suspect]
     Indication: ATRIAL FIBRILLATION
     Route: 048
     Dates: start: 201303, end: 20130414
  2. WARFARIN SODIUM TABLETS USP 5MG [Suspect]
     Indication: ATRIAL FIBRILLATION
     Route: 048
     Dates: start: 201303, end: 20130414
  3. WARFARIN SODIUM TABLETS USP 5MG [Suspect]
     Indication: ATRIAL FIBRILLATION
     Route: 048
     Dates: start: 20130415, end: 20130415
  4. WARFARIN SODIUM TABLETS USP 5MG [Suspect]
     Indication: ATRIAL FIBRILLATION
     Route: 048
     Dates: start: 20130416, end: 20130428
  5. WARFARIN SODIUM TABLETS USP 5MG [Suspect]
     Indication: ATRIAL FIBRILLATION
     Route: 048
     Dates: start: 20130429
  6. WARFARIN SODIUM TABLETS USP 5MG [Suspect]
     Indication: ATRIAL FIBRILLATION
     Route: 048
     Dates: start: 20130429
  7. METOPROLOL XL [Concomitant]
     Dates: start: 201301
  8. FLECAINIDE [Concomitant]
     Dates: start: 201301
  9. BABY ASPIRIN [Concomitant]
  10. FIBER [Concomitant]
  11. TRIPLE FLEX (CHONDROITIN/GLUCOSAMINE) [Concomitant]
  12. FISH OIL [Concomitant]
  13. TRAMADOL [Concomitant]
     Dates: start: 201303

REACTIONS (2)
  - Anticoagulation drug level below therapeutic [Not Recovered/Not Resolved]
  - Product substitution issue [Not Recovered/Not Resolved]
